FAERS Safety Report 7799050-7 (Version None)
Quarter: 2011Q4

REPORT INFORMATION
  Report Type: 
  Country: None (occurrence: None)
  Receive Date: 20111006
  Receipt Date: 20110928
  Transmission Date: 20120403
  Serious: Yes (Other)
  Sender: FDA-Public Use
  Company Number: US-SANOFI-AVENTIS-2011SA000647

PATIENT
  Age: 84 Year
  Sex: Male

DRUGS (5)
  1. LANTUS [Suspect]
     Route: 058
  2. SOLOSTAR [Suspect]
     Dates: end: 20101201
  3. NOVOLOG [Concomitant]
     Dosage: SLIDING SCALE AT MEAL TIME
  4. CARDIAC THERAPY [Concomitant]
  5. LANTUS [Suspect]
     Dosage: DOSE:20 UNIT(S)
     Route: 058
     Dates: start: 20010101, end: 20101201

REACTIONS (7)
  - IMPLANTABLE DEFIBRILLATOR INSERTION [None]
  - BODY TEMPERATURE DECREASED [None]
  - ABDOMINAL DISCOMFORT [None]
  - BLOOD GLUCOSE ABNORMAL [None]
  - MOOD SWINGS [None]
  - BLOOD GLUCOSE DECREASED [None]
  - IRRITABILITY [None]
